FAERS Safety Report 16986500 (Version 2)
Quarter: 2019Q4

REPORT INFORMATION
  Report Type: Spontaneous
  Country: BR (occurrence: BR)
  Receive Date: 20191103
  Receipt Date: 20191217
  Transmission Date: 20200122
  Serious: Yes (Hospitalization, Other)
  Sender: FDA-Public Use
  Company Number: BR-AMGEN-BRASP2019175154

PATIENT
  Age: 64 Year
  Sex: Male
  Weight: 58 kg

DRUGS (4)
  1. TECNOMET [METHOTREXATE SODIUM] [Concomitant]
     Active Substance: METHOTREXATE SODIUM
     Dosage: UNK
     Dates: start: 2004
  2. ENBREL [Suspect]
     Active Substance: ETANERCEPT
     Dosage: 50 MILLIGRAM (EVERY 15 DAYS)
     Route: 065
     Dates: start: 2016, end: 2018
  3. ENBREL [Suspect]
     Active Substance: ETANERCEPT
     Indication: RHEUMATOID ARTHRITIS
     Dosage: 50 MILLIGRAM, QWK
     Route: 065
     Dates: start: 2016
  4. ENBREL [Suspect]
     Active Substance: ETANERCEPT
     Dosage: UNK, QMO (TOOK EVERY MONTH)
     Route: 065
     Dates: start: 2016

REACTIONS (8)
  - Gastric disorder [Recovered/Resolved]
  - Renal disorder [Recovered/Resolved]
  - Dyspnoea [Recovered/Resolved]
  - Infarction [Recovered/Resolved]
  - Off label use [Recovered/Resolved]
  - Liver disorder [Recovered/Resolved]
  - Intentional product misuse [Recovered/Resolved]
  - Tremor [Recovered/Resolved]

NARRATIVE: CASE EVENT DATE: 2016
